FAERS Safety Report 9665516 (Version 1)
Quarter: 2013Q4

REPORT INFORMATION
  Report Type: Spontaneous
  Country: US (occurrence: US)
  Receive Date: 20131104
  Receipt Date: 20131104
  Transmission Date: 20140711
  Serious: No
  Sender: FDA-Public Use
  Company Number: US-PFIZER INC-2013312634

PATIENT
  Age: 51 Year
  Sex: Female
  Weight: 79.82 kg

DRUGS (3)
  1. CELEBREX [Suspect]
     Indication: RHEUMATOID ARTHRITIS
     Dosage: 200 MG, DAILY
     Route: 048
     Dates: start: 201310
  2. DIOVAN [Suspect]
     Indication: HYPERTENSION
     Dosage: 180 MG, DAILY
  3. INSULIN [Concomitant]
     Indication: DIABETES MELLITUS
     Dosage: 5 MG, DAILY

REACTIONS (3)
  - Muscle twitching [Unknown]
  - Pain in extremity [Unknown]
  - Hypertension [Unknown]
